FAERS Safety Report 11062110 (Version 1)
Quarter: 2015Q2

REPORT INFORMATION
  Report Type: Spontaneous
  Country: ML (occurrence: None)
  Receive Date: 20150422
  Receipt Date: 20150422
  Transmission Date: 20150821
  Serious: Yes (Death)
  Sender: FDA-Public Use
  Company Number: 2015AMD00055

PATIENT

DRUGS (1)
  1. FANSIDAR [Suspect]
     Active Substance: PYRIMETHAMINE\SULFADOXINE
     Indication: PLASMODIUM FALCIPARUM INFECTION
     Route: 048

REACTIONS (1)
  - Death [None]
